FAERS Safety Report 21554732 (Version 1)
Quarter: 2022Q4

REPORT INFORMATION
  Report Type: Report from Study
  Country: CA (occurrence: CA)
  Receive Date: 20221104
  Receipt Date: 20221104
  Transmission Date: 20230112
  Serious: Yes (Death, Life-Threatening, Hospitalization, Disabling, Other)
  Sender: FDA-Public Use
  Company Number: CA-MYLANLABS-2022M1010887

PATIENT
  Age: 40 Year
  Sex: Female

DRUGS (3)
  1. HULIO [Suspect]
     Active Substance: ADALIMUMAB-FKJP
     Indication: Rheumatoid arthritis
     Dosage: 40 MILLIGRAM, BIWEEKLY
     Route: 058
  2. VALACYCLOVIR [Concomitant]
     Active Substance: VALACYCLOVIR HYDROCHLORIDE
     Dosage: 2 DOSAGE FORM, TID (2 CAPSULES 3 TIMES A DAY, FOR 7 DAY)
     Route: 065
  3. METRONIDAZOLE [Concomitant]
     Active Substance: METRONIDAZOLE
     Dosage: UNK
     Route: 065

REACTIONS (5)
  - Death [Fatal]
  - Pruritus [Unknown]
  - Herpes zoster [Unknown]
  - Pneumonia [Unknown]
  - Cholecystitis [Unknown]
